FAERS Safety Report 6287463-4 (Version None)
Quarter: 2009Q3

REPORT INFORMATION
  Report Type: 
  Country: None (occurrence: None)
  Receive Date: 20090727
  Receipt Date: 20090720
  Transmission Date: 20100115
  Serious: Yes (Other)
  Sender: FDA-Public Use
  Company Number: 2009SP016048

PATIENT
  Age: 61 Year
  Sex: Male

DRUGS (3)
  1. NASONEX [Suspect]
     Indication: DRUG USE FOR UNKNOWN INDICATION
     Dosage: 2 DF;QD;NAS
     Route: 045
     Dates: start: 20080321, end: 20080522
  2. PIASCLEDINE (PIASCLEDINE 01305801/) [Suspect]
     Indication: DRUG USE FOR UNKNOWN INDICATION
     Dosage: 1 DF;QD;PO
     Route: 048
     Dates: start: 20080117, end: 20080522
  3. XYZALL (LEVOCETIRIZINE) [Suspect]
     Indication: DRUG USE FOR UNKNOWN INDICATION
     Dosage: 1 DF; QD; PO
     Route: 048
     Dates: start: 20080321, end: 20080522

REACTIONS (3)
  - BLOOD AMYLASE INCREASED [None]
  - HEPATITIS [None]
  - LIPASE INCREASED [None]
